FAERS Safety Report 7398393-9 (Version None)
Quarter: 2011Q2

REPORT INFORMATION
  Report Type: 
  Country: None (occurrence: None)
  Receive Date: 20110406
  Receipt Date: 20110329
  Transmission Date: 20111010
  Serious: Yes (Other)
  Sender: FDA-Public Use
  Company Number: US-AMGEN-USASP2011016872

PATIENT
  Age: 62 Year
  Sex: Female

DRUGS (1)
  1. ENBREL [Suspect]
     Indication: RHEUMATOID ARTHRITIS
     Dosage: 25 MG, 2 TIMES/WK
     Dates: start: 20090502

REACTIONS (9)
  - OEDEMA PERIPHERAL [None]
  - JOINT STIFFNESS [None]
  - PARAESTHESIA [None]
  - CHEST PAIN [None]
  - VISUAL IMPAIRMENT [None]
  - PAIN IN EXTREMITY [None]
  - DYSPNOEA [None]
  - CATHETERISATION CARDIAC [None]
  - INFLUENZA [None]
